FAERS Safety Report 19001815 (Version 2)
Quarter: 2021Q2

REPORT INFORMATION
  Report Type: Report from Study
  Country: CO (occurrence: CO)
  Receive Date: 20210312
  Receipt Date: 20210420
  Transmission Date: 20210717
  Serious: Yes (Death, Hospitalization)
  Sender: FDA-Public Use
  Company Number: NVSC2021CO056971

PATIENT
  Age: 80 Year
  Sex: Female

DRUGS (4)
  1. KISQALI [Suspect]
     Active Substance: RIBOCICLIB
     Indication: BREAST CANCER METASTATIC
     Dosage: UNK
     Route: 048
  2. LOSARTAN. [Suspect]
     Active Substance: LOSARTAN
     Indication: HYPERTENSION
     Dosage: 1 DF, Q12H
     Route: 048
  3. ACETAMINOPHEN. [Concomitant]
     Active Substance: ACETAMINOPHEN
     Indication: PAIN
     Dosage: 1 DF, Q12H
     Route: 048
  4. AMLODIPINE [Concomitant]
     Active Substance: AMLODIPINE BESYLATE
     Indication: HYPERTENSION
     Dosage: 1 DF, Q12H
     Route: 048

REACTIONS (11)
  - Peripheral swelling [Unknown]
  - Breast cancer metastatic [Fatal]
  - Asthenia [Unknown]
  - Multiple organ dysfunction syndrome [Unknown]
  - Renal failure [Unknown]
  - Dysphagia [Unknown]
  - General physical health deterioration [Unknown]
  - Off label use [Unknown]
  - Metastases to lung [Unknown]
  - Malignant neoplasm progression [Fatal]
  - Full blood count abnormal [Unknown]

NARRATIVE: CASE EVENT DATE: 20210305
